FAERS Safety Report 8078372-9 (Version None)
Quarter: 2012Q1

REPORT INFORMATION
  Report Type: 
  Country: None (occurrence: None)
  Receive Date: 20120123
  Receipt Date: 20120109
  Transmission Date: 20120608
  Serious: Yes (Other)
  Sender: FDA-Public Use
  Company Number: 2012MA000364

PATIENT
  Sex: Male
  Weight: 74.8435 kg

DRUGS (5)
  1. TOPROL-XL [Concomitant]
  2. WARFARIN SODIUM [Concomitant]
  3. CADUET [Concomitant]
  4. BENICAR HCT [Concomitant]
  5. DIGOXIN [Suspect]
     Indication: ATRIAL FIBRILLATION
     Dosage: 0.125 MG; QD; PO
     Route: 048
     Dates: start: 20061108, end: 20100215

REACTIONS (10)
  - NEPHRITIC SYNDROME [None]
  - HEADACHE [None]
  - GLOMERULONEPHRITIS MEMBRANOUS [None]
  - DRUG INEFFECTIVE [None]
  - BLOOD PRESSURE INCREASED [None]
  - HYPERTENSION [None]
  - NEPHROLITHIASIS [None]
  - PROTEINURIA [None]
  - EMPHYSEMA [None]
  - BENIGN PROSTATIC HYPERPLASIA [None]
